FAERS Safety Report 8097082-5 (Version None)
Quarter: 2012Q1

REPORT INFORMATION
  Report Type: 
  Country: None (occurrence: None)
  Receive Date: 20120129
  Receipt Date: 20111207
  Transmission Date: 20120608
  Serious: No
  Sender: FDA-Public Use
  Company Number: US-ABBOTT-11P-163-0881959-00

PATIENT
  Age: 36 Year
  Sex: Male

DRUGS (5)
  1. CENTRUM TI VITAMIN [Concomitant]
     Indication: PRODUCT USED FOR UNKNOWN INDICATION
     Dosage: 3-5 DAYS A WEEKS
  2. HUMIRA [Suspect]
     Indication: PSORIASIS
     Dates: start: 20111204, end: 20111204
  3. HUMIRA [Suspect]
  4. SIMILAR TO ZYRTEC FOR COLD AND ALLERGIES [Concomitant]
     Indication: PRODUCT USED FOR UNKNOWN INDICATION
  5. HUMIRA [Suspect]
     Dates: start: 20111211, end: 20111211

REACTIONS (3)
  - RESPIRATORY TRACT CONGESTION [None]
  - COUGH [None]
  - PAIN [None]
